FAERS Safety Report 20479493 (Version 1)
Quarter: 2022Q1

REPORT INFORMATION
  Report Type: Spontaneous
  Country: US (occurrence: None)
  Receive Date: 20220215
  Receipt Date: 20220215
  Transmission Date: 20220423
  Serious: No
  Sender: FDA-Public Use
  Company Number: None

PATIENT
  Age: 61 Year
  Sex: Female

DRUGS (2)
  1. OTEZLA [Suspect]
     Active Substance: APREMILAST
     Indication: Psoriasis
     Dosage: TAKE 1 TABLET BY MOUTH TWICE DAILY  AS DIRECTED      ?
     Route: 048
     Dates: start: 202202
  2. OTEZLA [Suspect]
     Active Substance: APREMILAST

REACTIONS (2)
  - COVID-19 [None]
  - Therapy interrupted [None]
